FAERS Safety Report 8252603-4 (Version None)
Quarter: 2012Q2

REPORT INFORMATION
  Report Type: 
  Country: None (occurrence: None)
  Receive Date: 20120402
  Receipt Date: 20120323
  Transmission Date: 20120825
  Serious: Yes (Hospitalization)
  Sender: FDA-Public Use
  Company Number: NL-BAXTER-2012BAX001226

PATIENT
  Age: 41 Year
  Sex: Male

DRUGS (2)
  1. EXTRANEAL [Suspect]
     Route: 033
     Dates: start: 20091014
  2. PHYSIONEAL 40 GLUCOSE 1.36% W/V / 13.6 MG/ML [Suspect]
     Route: 033
     Dates: start: 20091014

REACTIONS (1)
  - HYPERKALAEMIA [None]
